FAERS Safety Report 4503371-0 (Version None)
Quarter: 2004Q4

REPORT INFORMATION
  Report Type: 
  Country: None (occurrence: None)
  Receive Date: 20041117
  Receipt Date: 20040709
  Transmission Date: 20050328
  Serious: Yes (Other)
  Sender: FDA-Public Use
  Company Number: US-GLAXOSMITHKLINE-A0517825A

PATIENT
  Age: 49 Year
  Sex: Female
  Weight: 61.4 kg

DRUGS (3)
  1. AUGMENTIN '125' [Suspect]
     Dosage: 1000MG TWICE PER DAY
     Route: 048
     Dates: start: 20040509, end: 20040521
  2. BIAXIN [Suspect]
     Indication: SINUSITIS
     Dosage: 1000MG PER DAY
     Route: 048
     Dates: start: 20040504, end: 20040508
  3. OMNICEF [Concomitant]
     Dosage: 300MG TWICE PER DAY
     Route: 048
     Dates: start: 20040522, end: 20040522

REACTIONS (4)
  - ABDOMINAL PAIN [None]
  - FATIGUE [None]
  - JAUNDICE CHOLESTATIC [None]
  - PRURITUS [None]
